FAERS Safety Report 8265143-3 (Version None)
Quarter: 2012Q2

REPORT INFORMATION
  Report Type: 
  Country: None (occurrence: None)
  Receive Date: 20120406
  Receipt Date: 20120322
  Transmission Date: 20120825
  Serious: No
  Sender: FDA-Public Use
  Company Number: US-ENDO PHARMACEUTICALS INC.-PERC20120057

PATIENT
  Age: 68 Year
  Sex: Male

DRUGS (4)
  1. PERCOCET [Suspect]
     Indication: ARTHRITIS
     Dosage: UNK
     Route: 048
  2. PERCOCET [Suspect]
     Indication: BACK PAIN
  3. PERCOCET [Suspect]
     Indication: NECK PAIN
  4. PERCOCET [Suspect]
     Indication: NEUROPATHY PERIPHERAL

REACTIONS (1)
  - DRUG INEFFECTIVE [None]
